FAERS Safety Report 6396848-7 (Version None)
Quarter: 2009Q4

REPORT INFORMATION
  Report Type: 
  Country: None (occurrence: None)
  Receive Date: 20091012
  Receipt Date: 20090806
  Transmission Date: 20100525
  Serious: No
  Sender: FDA-Public Use
  Company Number: US-ASTRAZENECA-2009UW18301

PATIENT
  Age: 64 Year
  Sex: Female
  Weight: 65.8 kg

DRUGS (5)
  1. SYMBICORT [Suspect]
     Indication: ASTHMA
     Dosage: 160/4.5 UG 2 PUFFS
     Route: 055
  2. CRESTOR [Suspect]
     Route: 048
     Dates: start: 20090630, end: 20090101
  3. PRILOSEC [Concomitant]
     Route: 048
  4. ALBUTEROL [Concomitant]
  5. NAPROXEN [Concomitant]

REACTIONS (9)
  - GLOSSITIS [None]
  - NASAL CONGESTION [None]
  - ORAL CANDIDIASIS [None]
  - PALPITATIONS [None]
  - RHINALGIA [None]
  - SINUS HEADACHE [None]
  - SINUSITIS [None]
  - TACHYCARDIA [None]
  - TONGUE DISORDER [None]
